FAERS Safety Report 5101203-3 (Version None)
Quarter: 2006Q3

REPORT INFORMATION
  Report Type: 
  Country: None (occurrence: None)
  Receive Date: 20060911
  Receipt Date: 20060125
  Transmission Date: 20061208
  Serious: Yes (Hospitalization)
  Sender: FDA-Public Use
  Company Number: US-ROCHE-433895

PATIENT
  Age: 15 Year
  Sex: Male
  Weight: 65.8 kg

DRUGS (1)
  1. ACCUTANE [Suspect]
     Indication: ACNE
     Route: 048
     Dates: start: 19990517, end: 19990615

REACTIONS (5)
  - CONTUSION [None]
  - FALL [None]
  - HAEMATURIA [None]
  - PYELONEPHRITIS ACUTE [None]
  - RENAL DISORDER [None]
